FAERS Safety Report 11242734 (Version 1)
Quarter: 2015Q3

REPORT INFORMATION
  Report Type: Spontaneous
  Country: US (occurrence: None)
  Receive Date: 20150701
  Receipt Date: 20150701
  Transmission Date: 20151125
  Serious: Yes (Hospitalization)
  Sender: FDA-Public Use
  Company Number: None

PATIENT
  Age: 52 Year
  Sex: Female
  Weight: 180 kg

DRUGS (1)
  1. CISPLATIN. [Suspect]
     Active Substance: CISPLATIN
     Dates: end: 20150526

REACTIONS (5)
  - Oedema peripheral [None]
  - Heparin-induced thrombocytopenia [None]
  - Anaemia [None]
  - Bone marrow failure [None]
  - Deep vein thrombosis [None]

NARRATIVE: CASE EVENT DATE: 20150609
